FAERS Safety Report 9682155 (Version 2)
Quarter: 2013Q4

REPORT INFORMATION
  Report Type: Spontaneous
  Country: BR (occurrence: BR)
  Receive Date: 20131111
  Receipt Date: 20131119
  Transmission Date: 20140711
  Serious: Yes (Other)
  Sender: FDA-Public Use
  Company Number: BR-ABBVIE-13P-020-1167528-00

PATIENT
  Sex: Female

DRUGS (7)
  1. DEPAKENE [Suspect]
     Indication: MOOD ALTERED
     Route: 048
     Dates: start: 2001
  2. AKINETON [Concomitant]
     Indication: PARKINSONISM
     Dosage: HALF TABLET IN THE MORNING AND NIGHT
     Route: 048
     Dates: start: 2010
  3. CLONAZEPAN [Concomitant]
     Indication: SCHIZOPHRENIA
     Dosage: AT NIGHT
     Route: 048
     Dates: start: 2010
  4. ESCITALOPRAM OXALATE [Concomitant]
     Indication: ANXIETY
     Dosage: IN THE MORNING
     Route: 048
     Dates: start: 20131002
  5. OMEPRAZOLE [Concomitant]
     Indication: PROPHYLAXIS
     Dosage: IN THE MORNING
     Route: 048
     Dates: start: 201310
  6. OMEPRAZOLE [Concomitant]
     Indication: GASTRIC DISORDER
  7. PURAN T4 [Concomitant]
     Indication: HYPOTHYROIDISM
     Dosage: 1 TABLET, FASTING
     Route: 048
     Dates: start: 2002

REACTIONS (10)
  - Leiomyoma [Recovering/Resolving]
  - Haemorrhage [Recovering/Resolving]
  - Swelling [Recovering/Resolving]
  - Pruritus [Recovering/Resolving]
  - Uterine pain [Recovering/Resolving]
  - Vaginal discharge [Not Recovered/Not Resolved]
  - Asthenia [Recovering/Resolving]
  - Off label use [Unknown]
  - Vision blurred [Recovering/Resolving]
  - Abdominal pain [Unknown]
